FAERS Safety Report 9862425 (Version 2)
Quarter: 2014Q1

REPORT INFORMATION
  Report Type: Spontaneous
  Country: US (occurrence: US)
  Receive Date: 20140203
  Receipt Date: 20140203
  Transmission Date: 20141002
  Serious: Yes (Hospitalization)
  Sender: FDA-Public Use
  Company Number: US-OPTIMER-20130459

PATIENT
  Age: 80 Year
  Sex: Male
  Weight: 100.68 kg

DRUGS (25)
  1. DIFICID [Suspect]
     Indication: CLOSTRIDIUM DIFFICILE COLITIS
     Dosage: 200 MG, BID
     Route: 048
     Dates: start: 20131105
  2. DIFICID [Suspect]
     Dosage: 200 MG, BID
     Route: 048
     Dates: start: 20131115
  3. VANCOMYCIN [Concomitant]
     Indication: CLOSTRIDIUM DIFFICILE COLITIS
     Dosage: UNK
     Route: 048
     Dates: start: 201310
  4. PLAVIX [Concomitant]
     Dosage: 75 MG, QD
  5. PROTONIX [Concomitant]
     Dosage: 40 MG, BID
  6. VITAMIN D [Concomitant]
     Dosage: 5000 IU, QD
  7. VITAMIN D [Concomitant]
     Dosage: 2000 IU, EVERY OTHER DAY
  8. IRON [Concomitant]
     Dosage: UNK
  9. ALLOPURINOL [Concomitant]
     Dosage: 300 MG, QD
  10. AMLODIPINE [Concomitant]
     Dosage: 2.5 MG, QD
  11. CILOSTAZOL [Concomitant]
     Dosage: 100 MG, BID
  12. FERROUS SULFATE [Concomitant]
     Dosage: 325 MG, BID
  13. FOLIC ACID [Concomitant]
     Dosage: 1 MG, QD
  14. FUROSEMIDE [Concomitant]
     Dosage: 40 MG, QD
  15. IMDUR [Concomitant]
     Dosage: 60 MG, QD
  16. LIPITOR [Concomitant]
     Dosage: 40 MG, QD
  17. LISINOPRIL [Concomitant]
     Dosage: 2.5 MG, QD
  18. NITROGLYCERIN [Concomitant]
     Dosage: 0.4 MG, PRN
  19. POTASSIUM CHLORIDE [Concomitant]
     Dosage: 20 MEQ, QD
  20. VITAMIN B12 [Concomitant]
     Dosage: 1000 ?G, QD
  21. ATENOLOL [Concomitant]
     Dosage: 12.5 MG, BID
  22. RANOLAZINE [Concomitant]
     Dosage: 500 MG, BID
  23. ASPIRIN E.C [Concomitant]
     Dosage: 81 MG, QD
  24. XARELTO [Concomitant]
     Dosage: 15 MG, QD
  25. UNASYN [Concomitant]
     Indication: ENTERITIS
     Dosage: UNK
     Route: 042
     Dates: start: 201310

REACTIONS (5)
  - Gastrointestinal haemorrhage [Unknown]
  - Cellulitis [Recovered/Resolved]
  - Abdominal pain [Recovered/Resolved]
  - Clostridium difficile colitis [Not Recovered/Not Resolved]
  - Disease recurrence [Not Recovered/Not Resolved]
